FAERS Safety Report 6666918-4 (Version None)
Quarter: 2010Q2

REPORT INFORMATION
  Report Type: 
  Country: None (occurrence: None)
  Receive Date: 20100405
  Receipt Date: 20100323
  Transmission Date: 20101027
  Serious: Yes (Other)
  Sender: FDA-Public Use
  Company Number: PHEH2010US03109

PATIENT
  Sex: Female
  Weight: 89.796 kg

DRUGS (4)
  1. ZOMETA [Suspect]
     Indication: METASTASES TO BONE
     Dosage: 4 MG IV EVERY 4 WEEKS
     Route: 042
     Dates: start: 20071201, end: 20100101
  2. AROMASIN [Concomitant]
     Indication: BREAST CANCER METASTATIC
     Dosage: 25 MG, QOD
     Route: 048
     Dates: start: 20071101
  3. XELODA [Concomitant]
     Indication: BREAST CANCER METASTATIC
     Dosage: 1000 MG BID X 14 DAYS THEN Q21 DAYS
     Route: 048
     Dates: start: 20080501
  4. ANTI-ESTROGENS [Concomitant]
     Dosage: UNK

REACTIONS (5)
  - BONE DISORDER [None]
  - METASTASES TO BONE [None]
  - OSTEONECROSIS [None]
  - PAIN [None]
  - TOOTH FRACTURE [None]
